FAERS Safety Report 7378212-7 (Version None)
Quarter: 2011Q1

REPORT INFORMATION
  Report Type: 
  Country: None (occurrence: None)
  Receive Date: 20110328
  Receipt Date: 20110321
  Transmission Date: 20110831
  Serious: Yes (Other)
  Sender: FDA-Public Use
  Company Number: A0919235A

PATIENT
  Age: 63 Year
  Sex: Female

DRUGS (4)
  1. CELEXA [Concomitant]
  2. ADVAIR DISKUS 100/50 [Suspect]
     Indication: CHRONIC OBSTRUCTIVE PULMONARY DISEASE
     Dosage: 1PUFF TWICE PER DAY
     Route: 055
     Dates: start: 20110301
  3. OMEPRAZOLE [Concomitant]
  4. ANTIBIOTIC [Concomitant]

REACTIONS (12)
  - CHEST PAIN [None]
  - NERVOUSNESS [None]
  - HEART RATE INCREASED [None]
  - HEADACHE [None]
  - TREMOR [None]
  - DISSOCIATIVE DISORDER [None]
  - OROPHARYNGEAL PAIN [None]
  - ERYTHEMA [None]
  - FEELING ABNORMAL [None]
  - EYE PAIN [None]
  - DEPRESSION [None]
  - SUICIDAL IDEATION [None]
